FAERS Safety Report 6766519-3 (Version None)
Quarter: 2010Q2

REPORT INFORMATION
  Report Type: 
  Country: None (occurrence: None)
  Receive Date: 20100609
  Receipt Date: 20100527
  Transmission Date: 20101027
  Serious: Yes (Other)
  Sender: FDA-Public Use
  Company Number: 012778

PATIENT
  Age: 66 Year
  Sex: Female

DRUGS (3)
  1. ROTIGOTINE (ROTIGOTINE) [Suspect]
     Dosage: (TRANSDERMAL) (6 MG TRANSDERMAL)
     Route: 062
     Dates: start: 20070101, end: 20070101
  2. ROTIGOTINE (ROTIGOTINE) [Suspect]
     Dosage: (TRANSDERMAL) (6 MG TRANSDERMAL)
     Route: 062
     Dates: start: 20070101
  3. CARBIDOPA AND LEVODOPA [Concomitant]

REACTIONS (4)
  - ABNORMAL BEHAVIOUR [None]
  - BRONCHOPNEUMONIA [None]
  - FALL [None]
  - FEMUR FRACTURE [None]
